FAERS Safety Report 6784292-X (Version None)
Quarter: 2010Q2

REPORT INFORMATION
  Report Type: 
  Country: None (occurrence: None)
  Receive Date: 20100622
  Receipt Date: 20100609
  Transmission Date: 20101027
  Serious: Yes (Life-Threatening, Hospitalization, Other)
  Sender: FDA-Public Use
  Company Number: GB-ELI_LILLY_AND_COMPANY-GB201004007672

PATIENT
  Sex: Female

DRUGS (7)
  1. FLUOXETINE [Suspect]
     Indication: DEPRESSED MOOD
     Dosage: 20 MG, UNK
     Route: 048
     Dates: start: 20100321, end: 20100326
  2. ANTIBIOTICS [Concomitant]
  3. BENDROFLUAZIDE [Concomitant]
  4. CANDESARTAN [Concomitant]
  5. CO-DYDRAMOL [Concomitant]
  6. FRUSEMIDE [Concomitant]
  7. TRIMETHOPRIM [Concomitant]

REACTIONS (9)
  - ALANINE AMINOTRANSFERASE INCREASED [None]
  - BLOOD CREATININE INCREASED [None]
  - DEHYDRATION [None]
  - FATIGUE [None]
  - GENERAL PHYSICAL HEALTH DETERIORATION [None]
  - HEPATIC STEATOSIS [None]
  - MALAISE [None]
  - PNEUMONIA [None]
  - VOMITING [None]
